FAERS Safety Report 14975320 (Version 1)
Quarter: 2018Q2

REPORT INFORMATION
  Report Type: Report from Study
  Country: IT (occurrence: IT)
  Receive Date: 20180605
  Receipt Date: 20180605
  Transmission Date: 20180711
  Serious: Yes (Death)
  Sender: FDA-Public Use
  Company Number: IT-MYLANLABS-2018M1038413

PATIENT
  Age: 64 Year
  Sex: Male

DRUGS (2)
  1. INFLUENZA VACCINE INACT [Suspect]
     Active Substance: INFLUENZA VIRUS VACCINE
     Indication: IMMUNISATION
     Route: 065
  2. WARFARIN [Suspect]
     Active Substance: WARFARIN
     Indication: ANTICOAGULANT THERAPY
     Route: 065

REACTIONS (4)
  - Drug interaction [Fatal]
  - Rectal haemorrhage [Fatal]
  - Haemorrhage intracranial [Fatal]
  - Cerebral infarction [Fatal]
